FAERS Safety Report 19520006 (Version 1)
Quarter: 2021Q3

REPORT INFORMATION
  Report Type: Spontaneous
  Country: NL (occurrence: NL)
  Receive Date: 20210712
  Receipt Date: 20210712
  Transmission Date: 20211014
  Serious: Yes (Other)
  Sender: FDA-Public Use
  Company Number: NL-SA-2021SA222007

PATIENT
  Age: 69 Year
  Sex: Female

DRUGS (5)
  1. IOPIDINE [Concomitant]
     Active Substance: APRACLONIDINE HYDROCHLORIDE
     Indication: INTRAOCULAR PRESSURE TEST
     Dosage: AFTER EYLEA AROUND THE PRICK
     Dates: start: 20210329
  2. BEVACIZUMAB. [Concomitant]
     Active Substance: BEVACIZUMAB
     Indication: PRODUCT USED FOR UNKNOWN INDICATION
     Dosage: THE OTHER EYE
  3. AFLIBERCEPT [Suspect]
     Active Substance: AFLIBERCEPT
     Dosage: SECOND INJECTION 40 MG/ML
     Dates: start: 20210329
  4. AFLIBERCEPT [Suspect]
     Active Substance: AFLIBERCEPT
     Dosage: THIRD INJECTION 40 MG/ML
     Dates: start: 20210519
  5. AFLIBERCEPT [Suspect]
     Active Substance: AFLIBERCEPT
     Indication: AGE-RELATED MACULAR DEGENERATION
     Dosage: INJECTION FLUID, 40 MG/ML (MILLIGRAMS PER MILLILITER),
     Dates: start: 20210204

REACTIONS (1)
  - Intraocular pressure increased [Recovering/Resolving]

NARRATIVE: CASE EVENT DATE: 20210204
